FAERS Safety Report 12856785 (Version 3)
Quarter: 2017Q2

REPORT INFORMATION
  Report Type: Spontaneous
  Country: US (occurrence: US)
  Receive Date: 20161018
  Receipt Date: 20170531
  Transmission Date: 20170830
  Serious: No
  Sender: FDA-Public Use
  Company Number: US-PFIZER INC-2016479196

PATIENT
  Age: 80 Year
  Sex: Male

DRUGS (20)
  1. MAGNESIUM SULFATE. [Suspect]
     Active Substance: MAGNESIUM SULFATE
     Indication: MAGNESIUM DEFICIENCY
     Dosage: 400 MG, 1X/DAY
     Dates: start: 20160818
  2. FOSINOPRIL/HCTZ [Concomitant]
     Indication: BLOOD PRESSURE ABNORMAL
     Dosage: UNK, 1X/DAY [FOSINOPRIL SODIUM: 10 MG]/ [HYDROCHLOROTHIAZIDE: 12.5]
  3. GABAPENTIN. [Concomitant]
     Active Substance: GABAPENTIN
     Indication: POST HERPETIC NEURALGIA
     Dosage: 800 MG, 3X/DAY
  4. MAGNESIUM OXIDE. [Concomitant]
     Active Substance: MAGNESIUM OXIDE
     Indication: BLOOD MAGNESIUM DECREASED
     Dosage: 400 MG, 1X/DAY 1 (PM)
  5. VITAMIN C [Concomitant]
     Active Substance: ASCORBIC ACID
     Indication: RHEUMATOID ARTHRITIS
     Dosage: 500 MG, 2X/DAY 2 (AM/PM)
  6. ASPIRIN. [Concomitant]
     Active Substance: ASPIRIN
     Indication: ANTICOAGULANT THERAPY
     Dosage: 81 MG, 1X/DAY 1 (AM)
  7. METOPROLOL TARTRATE. [Concomitant]
     Active Substance: METOPROLOL TARTRATE
     Indication: BLOOD PRESSURE ABNORMAL
     Dosage: 25 MG, 2X/DAY (AM/PM)
  8. AVASTIN [Concomitant]
     Active Substance: BEVACIZUMAB
     Indication: NEOVASCULAR AGE-RELATED MACULAR DEGENERATION
     Dosage: UNK (: 9-12 WEEKS)
  9. VITAMIN B12 [Concomitant]
     Active Substance: CYANOCOBALAMIN
     Indication: HAEMOGLOBIN ABNORMAL
     Dosage: 500 UG, 1X/DAY 1 (PM)
  10. SILDENAFIL. [Concomitant]
     Active Substance: SILDENAFIL
     Indication: PULMONARY ARTERIAL HYPERTENSION
     Dosage: 20 MG, 3X/DAY
  11. CENTRUM [Concomitant]
     Active Substance: VITAMINS
     Indication: VITAMIN SUPPLEMENTATION
     Dosage: UNK, 1X/DAY
  12. CENTRUM [Concomitant]
     Active Substance: VITAMINS
     Indication: ROUTINE HEALTH MAINTENANCE
  13. FLAXSEED [Concomitant]
     Active Substance: FLAX SEED
     Indication: RHEUMATOID ARTHRITIS
     Dosage: 1000 MG, 2X/DAY 2 (AM/PM)
  14. OCUVITE [Concomitant]
     Active Substance: VITAMINS
     Indication: MACULAR DEGENERATION
     Dosage: 2 DF, 2X/DAY 2 (AM/PM)
  15. FERROUS SULFATE. [Suspect]
     Active Substance: FERROUS SULFATE
     Indication: IRON DEFICIENCY
  16. GLUCOSAMINE SULPHATE [Concomitant]
     Active Substance: GLUCOSAMINE
     Indication: RHEUMATOID ARTHRITIS
     Dosage: 500 MG, 2X/DAY 2 (AM/PM)
  17. ALLOPURINOL. [Concomitant]
     Active Substance: ALLOPURINOL
     Indication: BLOOD URIC ACID ABNORMAL
     Dosage: 300 MG, 1X/DAY
  18. ANORO ELLIPTA [Concomitant]
     Active Substance: UMECLIDINIUM BROMIDE\VILANTEROL TRIFENATATE
     Indication: CHRONIC OBSTRUCTIVE PULMONARY DISEASE
     Dosage: UNK UNK, 1X/DAY (1 INHALATION)
  19. FERROUS SULFATE. [Suspect]
     Active Substance: FERROUS SULFATE
     Indication: AMNESIA
     Dosage: 325 MG, 1X/DAY PM
     Dates: start: 20160314
  20. ATORVASTATIN [Concomitant]
     Active Substance: ATORVASTATIN
     Indication: BLOOD CHOLESTEROL ABNORMAL
     Dosage: 40 MG, 1X/DAY (1 PM)

REACTIONS (2)
  - Pain [Recovered/Resolved]
  - Condition aggravated [Recovered/Resolved]

NARRATIVE: CASE EVENT DATE: 20161001
